FAERS Safety Report 9300145 (Version 1)
Quarter: 2013Q1

REPORT INFORMATION
  Report Type: Spontaneous
  Country: US (occurrence: None)
  Receive Date: 20121220
  Receipt Date: 20121220
  Transmission Date: 20140127
  Serious: Yes (Hospitalization)
  Sender: FDA-Public Use
  Company Number: 2012SP003150

PATIENT
  Age: 69 Year
  Sex: Male

DRUGS (15)
  1. NOXAFIL [Suspect]
     Indication: PRODUCT USED FOR UNKNOWN INDICATION
     Route: 048
     Dates: start: 20111221
  2. ACYCLOVIR (ACYCLOVIR) [Concomitant]
  3. CEFEPIME (CEFEPIME) [Concomitant]
  4. CHOLECALCIFEROL (CHOLECALCIFEROL) [Concomitant]
  5. CYANOCOBALAMIN (CYANOCOBALAMIN) [Concomitant]
  6. DILTIAZEM (DILTIAZEM HYDROCHLORIDE) [Concomitant]
  7. SYNTHROID (LEVOTHYROXINE SODIUM) [Concomitant]
  8. LIDOCAINE (LIDOCAINE) [Concomitant]
  9. MAALOX (ALUMINUM HYDROXIDE (+) MAGNESIUM HYDROXIDE) (ALUMINUM HYDROXIDE, MAGNESIUM HYDROXIDE) [Concomitant]
  10. POTASSIUM PHOSPHATE, DIBASIC (+) POTASSIUM PHOSPHATE, MONOBASIC (+) SO (POTASSIUM PHOSPHATE, DIBASIC, POTASSIUM PHOSPHATE, MONOBASIC, SODIUM PHOSPHATE, DIBASIC, SODIUM PHOSPHATE, MONOBASIC) [Concomitant]
  11. PRILOSEC [Concomitant]
  12. POTASSIUM (UNSPECIFIED) (POTASSIUM (UNSPECIFIED)) [Concomitant]
  13. FLOMAX (TAMSULOSIN HYDROCHLORIDE) (TAMSULOSIN HYDROCHLORIDE) [Concomitant]
  14. VANCOMYCIN (VANCOMYCIN) [Concomitant]
  15. COLACE (DOCUSATE SODIUM) [Concomitant]

REACTIONS (1)
  - Diarrhoea [None]
